FAERS Safety Report 5141454-5 (Version None)
Quarter: 2006Q4

REPORT INFORMATION
  Report Type: 
  Country: None (occurrence: None)
  Receive Date: 20061101
  Receipt Date: 20061026
  Transmission Date: 20070319
  Serious: Yes (Hospitalization)
  Sender: FDA-Public Use
  Company Number: 2006SE05819

PATIENT
  Age: 65 Year
  Sex: Male
  Weight: 116 kg

DRUGS (3)
  1. BLOPRESS PLUS [Suspect]
     Indication: ESSENTIAL HYPERTENSION
     Dosage: 8 MG CANDESARTAN CILEXETIL + 12.5 MG HYDROCHLOROTHIAZIDE
     Route: 048
     Dates: start: 20050202, end: 20060814
  2. PONSTAN [Concomitant]
     Route: 048
  3. PREDNISONE TAB [Concomitant]
     Indication: ARTHRALGIA
     Route: 048
     Dates: end: 20060601

REACTIONS (6)
  - FALL [None]
  - GENERAL PHYSICAL HEALTH DETERIORATION [None]
  - PERICARDIAL EFFUSION [None]
  - SYSTEMIC LUPUS ERYTHEMATOSUS [None]
  - TACHYCARDIA [None]
  - TACHYPNOEA [None]
